FAERS Safety Report 7591481-3 (Version None)
Quarter: 2011Q3

REPORT INFORMATION
  Report Type: 
  Country: None (occurrence: None)
  Receive Date: 20110706
  Receipt Date: 20110621
  Transmission Date: 20111222
  Serious: No
  Sender: FDA-Public Use
  Company Number: US-ROXANE LABORATORIES, INC.-2011-RO-00732RO

PATIENT
  Sex: Female

DRUGS (2)
  1. TORADOL [Suspect]
  2. PREDNISONE [Suspect]

REACTIONS (3)
  - MUSCULAR WEAKNESS [None]
  - DRUG INEFFECTIVE [None]
  - PAIN IN EXTREMITY [None]
